FAERS Safety Report 4705460-4 (Version None)
Quarter: 2005Q3

REPORT INFORMATION
  Report Type: 
  Country: None (occurrence: None)
  Receive Date: 20050701
  Receipt Date: 20050624
  Transmission Date: 20060218
  Serious: Yes (Other)
  Sender: FDA-Public Use
  Company Number: 200515332US

PATIENT
  Sex: Female
  Weight: 109 kg

DRUGS (3)
  1. LANTUS [Suspect]
     Indication: DIABETES MELLITUS
     Dosage: DOSE UNIT: UNITS
     Route: 058
     Dates: start: 20040101
  2. TYLENOL W/ CODEINE NO. 3 [Concomitant]
     Dosage: DOSE: UNK
  3. BENADRYL [Concomitant]
     Dosage: DOSE: UNK

REACTIONS (15)
  - BLOOD GLUCOSE DECREASED [None]
  - BLOOD GLUCOSE FLUCTUATION [None]
  - DIABETIC KETOACIDOSIS [None]
  - DIARRHOEA [None]
  - DIZZINESS [None]
  - EYE HAEMORRHAGE [None]
  - IRRITABILITY [None]
  - MENSTRUATION IRREGULAR [None]
  - NAUSEA [None]
  - PHARMACEUTICAL PRODUCT COMPLAINT [None]
  - RASH [None]
  - THIRST [None]
  - VISION BLURRED [None]
  - VITREOUS FLOATERS [None]
  - VOMITING [None]
